FAERS Safety Report 9341061 (Version 1)
Quarter: 2013Q2

REPORT INFORMATION
  Report Type: Spontaneous
  Country: US (occurrence: US)
  Receive Date: 20130610
  Receipt Date: 20130610
  Transmission Date: 20140414
  Serious: Yes (Hospitalization)
  Sender: FDA-Public Use
  Company Number: US-B.I. PHARMACEUTICALS,INC./RIDGEFIELD-2013-BI-16333BP

PATIENT
  Age: 90 Year
  Sex: Male
  Weight: 75 kg

DRUGS (1)
  1. PRADAXA [Suspect]
     Indication: ATRIAL FIBRILLATION
     Dosage: 300 MG
     Route: 048
     Dates: start: 201011, end: 201207

REACTIONS (5)
  - Large intestine perforation [Recovered/Resolved]
  - Intestinal obstruction [Recovered/Resolved]
  - Haemorrhage [Recovered/Resolved]
  - Skin haemorrhage [Not Recovered/Not Resolved]
  - Abnormal loss of weight [Not Recovered/Not Resolved]
